FAERS Safety Report 8162961-7 (Version None)
Quarter: 2012Q1

REPORT INFORMATION
  Report Type: 
  Country: None (occurrence: None)
  Receive Date: 20120224
  Receipt Date: 20120216
  Transmission Date: 20120608
  Serious: Yes (Other)
  Sender: FDA-Public Use
  Company Number: US-BAYER-200937685NA

PATIENT
  Age: 45 Year
  Sex: Female
  Weight: 135 kg

DRUGS (7)
  1. PROTAMINE SULFATE [Concomitant]
     Dosage: 50MG
     Route: 042
     Dates: start: 20040312, end: 20040312
  2. TRASYLOL [Suspect]
     Indication: CORONARY ARTERY BYPASS
     Dosage: APROTININ PER PROTOCOL
     Route: 042
     Dates: start: 20040312, end: 20040312
  3. ATENOLOL [Concomitant]
     Dosage: UNK
     Route: 048
     Dates: start: 19940101
  4. LIPITOR [Concomitant]
     Route: 048
  5. HEPARIN [Concomitant]
     Dosage: 13,000UNITS
     Route: 042
     Dates: start: 20040312, end: 20040312
  6. INSULIN [Concomitant]
     Dosage: 2UNITS PER HOUR
     Route: 042
     Dates: start: 20040312, end: 20040312
  7. RED BLOOD CELLS [Concomitant]
     Dosage: 2 UNITS
     Dates: start: 20040312

REACTIONS (5)
  - RENAL FAILURE ACUTE [None]
  - RENAL FAILURE [None]
  - INJURY [None]
  - PAIN [None]
  - UNEVALUABLE EVENT [None]
